FAERS Safety Report 4824860-5 (Version None)
Quarter: 2005Q4

REPORT INFORMATION
  Report Type: 
  Country: None (occurrence: None)
  Receive Date: 20051012
  Receipt Date: 20050714
  Transmission Date: 20060501
  Serious: No
  Sender: FDA-Public Use
  Company Number: 2005S1000152

PATIENT
  Age: 35 Year
  Weight: 105 kg

DRUGS (6)
  1. CUBICIN [Suspect]
     Indication: BREAST INFECTION
     Dosage: IV
     Route: 042
     Dates: start: 20050101, end: 20050715
  2. CUBICIN [Suspect]
     Indication: STAPHYLOCOCCAL INFECTION
     Dosage: IV
     Route: 042
     Dates: start: 20050101, end: 20050715
  3. WARFARIN [Concomitant]
  4. VANCOMYCIN [Concomitant]
  5. TAMOXIFEN [Concomitant]
  6. CEFEPIME [Concomitant]

REACTIONS (1)
  - FATIGUE [None]
